FAERS Safety Report 9084390 (Version 2)
Quarter: 2013Q1

REPORT INFORMATION
  Report Type: Spontaneous
  Country: US (occurrence: US)
  Receive Date: 20130131
  Receipt Date: 20130221
  Transmission Date: 20140127
  Serious: Yes (Other)
  Sender: FDA-Public Use
  Company Number: US-PFIZER INC-2013038189

PATIENT
  Age: 65 Year
  Sex: Female
  Weight: 86.17 kg

DRUGS (1)
  1. PRISTIQ [Suspect]
     Indication: HOT FLUSH
     Dosage: UNK

REACTIONS (5)
  - Intentional drug misuse [Unknown]
  - Drug administration error [Unknown]
  - Withdrawal syndrome [Unknown]
  - Tachycardia [Unknown]
  - Hypertension [Unknown]
